FAERS Safety Report 5942181-4 (Version None)
Quarter: 2008Q4

REPORT INFORMATION
  Report Type: 
  Country: None (occurrence: None)
  Receive Date: 20081104
  Receipt Date: 20081104
  Transmission Date: 20090506
  Serious: No
  Sender: FDA-Public Use
  Company Number: None

PATIENT
  Age: 78 Year
  Sex: Male

DRUGS (1)
  1. DEFERASIROX [Suspect]
     Indication: MYELODYSPLASTIC SYNDROME
     Dosage: 2000 MG EVERY DAY PO
     Route: 048
     Dates: start: 20070705, end: 20070827

REACTIONS (5)
  - CHOLECYSTITIS [None]
  - HEPATIC ENZYME INCREASED [None]
  - PANCREATITIS [None]
  - POST PROCEDURAL COMPLICATION [None]
  - WHEELCHAIR USER [None]
